FAERS Safety Report 19548308 (Version 1)
Quarter: 2021Q3

REPORT INFORMATION
  Report Type: Spontaneous
  Country: US (occurrence: US)
  Receive Date: 20210715
  Receipt Date: 20210715
  Transmission Date: 20211014
  Serious: No
  Sender: FDA-Public Use
  Company Number: US-CIPLA LTD.-2021US04449

PATIENT

DRUGS (5)
  1. ATAZANAVIR. [Suspect]
     Active Substance: ATAZANAVIR
     Indication: ANTIRETROVIRAL THERAPY
     Dosage: ) T400 (UNITS UNSPECIFIEDOTAL DAILY DOSE, COURSE 1
     Route: 048
     Dates: start: 2018
  2. ZIDOVUDINE. [Suspect]
     Active Substance: ZIDOVUDINE
     Indication: ANTIRETROVIRAL THERAPY
     Dosage: 2 (UNITS UNSPECIFIED) TOTAL DAILY DOSE, COURSE 1
     Route: 042
     Dates: start: 2018, end: 2018
  3. RITONAVIR. [Suspect]
     Active Substance: RITONAVIR
     Indication: ANTIRETROVIRAL THERAPY
     Dosage: 1 (UNITS UNSPECIFIED) TOTAL DAILY DOSE, COURSE 1
     Route: 048
     Dates: start: 2018
  4. EMTRICITABINE/TENOFOVIR [Suspect]
     Active Substance: EMTRICITABINE\TENOFOVIR
     Indication: ANTIRETROVIRAL THERAPY
     Dosage: 1 (UNITS UNSPECIFIED) TOTAL DAILY DOSE, COURSE 1
     Route: 048
     Dates: start: 2018
  5. ZIDOVUDINE. [Suspect]
     Active Substance: ZIDOVUDINE
     Dosage: 1 (UNITS UNSPECIFIED) TOTAL DAILY DOSE, COURSE 2
     Route: 042
     Dates: start: 2018, end: 2018

REACTIONS (2)
  - No adverse event [Unknown]
  - Exposure during pregnancy [Unknown]

NARRATIVE: CASE EVENT DATE: 2018
